FAERS Safety Report 5441052-X (Version None)
Quarter: 2007Q3

REPORT INFORMATION
  Report Type: 
  Country: None (occurrence: None)
  Receive Date: 20070831
  Receipt Date: 20070820
  Transmission Date: 20080115
  Serious: Yes (Hospitalization, Other)
  Sender: FDA-Public Use
  Company Number: US-PFIZER INC-2007043508

PATIENT
  Sex: Male

DRUGS (1)
  1. CELEBREX [Suspect]
     Indication: ARTHRALGIA

REACTIONS (5)
  - CARDIOVASCULAR DISORDER [None]
  - DIARRHOEA [None]
  - GASTRIC DISORDER [None]
  - GASTROOESOPHAGEAL REFLUX DISEASE [None]
  - IRRITABLE BOWEL SYNDROME [None]
